FAERS Safety Report 13802502 (Version 1)
Quarter: 2017Q3

REPORT INFORMATION
  Report Type: Spontaneous
  Country: US (occurrence: US)
  Receive Date: 20170727
  Receipt Date: 20170727
  Transmission Date: 20171127
  Serious: Yes (Other)
  Sender: FDA-Public Use
  Company Number: None

PATIENT
  Age: 69 Year
  Sex: Male
  Weight: 83.92 kg

DRUGS (1)
  1. ATORVASTATIN CALCIUM 20MG 20MG LEK PHARMACEUTICALS FOR SANDOZ INC [Suspect]
     Active Substance: ATORVASTATIN CALCIUM
     Indication: TYPE V HYPERLIPIDAEMIA
     Dosage: FREQUENCY - 1 QAM
     Route: 048
     Dates: start: 201506, end: 20151013

REACTIONS (3)
  - Headache [None]
  - Head discomfort [None]
  - Product substitution issue [None]

NARRATIVE: CASE EVENT DATE: 20150601
